FAERS Safety Report 23682670 (Version 1)
Quarter: 2024Q1

REPORT INFORMATION
  Report Type: Spontaneous
  Country: US (occurrence: None)
  Receive Date: 20240327
  Receipt Date: 20240327
  Transmission Date: 20240410
  Serious: Yes (Life-Threatening, Hospitalization, Other)
  Sender: FDA-Public Use
  Company Number: None

PATIENT
  Age: 73 Year
  Sex: Female
  Weight: 60.5 kg

DRUGS (1)
  1. LECANEMAB [Suspect]
     Active Substance: LECANEMAB
     Indication: Dementia Alzheimer^s type
     Dosage: OTHER FREQUENCY : EVERY OTHER WEEK;?
     Route: 041
     Dates: start: 20240327, end: 20240327

REACTIONS (2)
  - Syncope [None]
  - Cerebral microhaemorrhage [None]

NARRATIVE: CASE EVENT DATE: 20240327
